FAERS Safety Report 10470038 (Version 1)
Quarter: 2014Q3

REPORT INFORMATION
  Report Type: Spontaneous
  Country: US (occurrence: US)
  Receive Date: 20140923
  Receipt Date: 20140923
  Transmission Date: 20150326
  Serious: No
  Sender: FDA-Public Use
  Company Number: US-SHIONOGI, INC-2014000786

PATIENT
  Age: 77 Year
  Sex: Female
  Weight: 57.6 kg

DRUGS (3)
  1. FOSAMAX [Concomitant]
     Active Substance: ALENDRONATE SODIUM
     Indication: BONE LOSS
     Dosage: UNK
     Route: 065
  2. OSPHENA [Suspect]
     Active Substance: OSPEMIFENE
     Indication: ATROPHIC VULVOVAGINITIS
     Dosage: UNK
     Route: 065
  3. OSPHENA [Suspect]
     Active Substance: OSPEMIFENE
     Indication: OFF LABEL USE

REACTIONS (2)
  - Dizziness [Unknown]
  - Off label use [Unknown]
